FAERS Safety Report 7828197-1 (Version None)
Quarter: 2011Q4

REPORT INFORMATION
  Report Type: 
  Country: None (occurrence: None)
  Receive Date: 20111018
  Receipt Date: 20111003
  Transmission Date: 20120403
  Serious: Yes (Other)
  Sender: FDA-Public Use
  Company Number: TPA2011A06426

PATIENT
  Age: 7 Decade
  Sex: Male

DRUGS (1)
  1. ACTOS [Suspect]
     Dosage: 1 IN 1 D, PER ORAL
     Route: 048
     Dates: start: 20081003, end: 20110101

REACTIONS (1)
  - BLADDER CANCER [None]
